FAERS Safety Report 25716969 (Version 2)
Quarter: 2025Q3

REPORT INFORMATION
  Report Type: Spontaneous
  Country: GB (occurrence: GB)
  Receive Date: 20250822
  Receipt Date: 20250924
  Transmission Date: 20251020
  Serious: Yes (Death, Hospitalization, Other)
  Sender: DR REDDYS
  Company Number: None

PATIENT
  Sex: Male

DRUGS (7)
  1. ZOLEDRONIC ACID [Suspect]
     Active Substance: ZOLEDRONIC ACID
     Indication: Product used for unknown indication
  2. LANREOTIDE [Suspect]
     Active Substance: LANREOTIDE
     Indication: Neuroendocrine tumour
  3. LANREOTIDE [Suspect]
     Active Substance: LANREOTIDE
     Dosage: 120 MG E28D (DEEP SUBCUTANEOUS)
     Route: 058
     Dates: start: 20240425
  4. LANREOTIDE [Suspect]
     Active Substance: LANREOTIDE
     Dosage: 120 MG E28D (DEEP SUBCUTANEOUS)
     Route: 058
     Dates: start: 20250102
  5. LANREOTIDE [Suspect]
     Active Substance: LANREOTIDE
     Dosage: 120 MG E28D (DEEP SUBCUTANEOUS)
     Route: 058
  6. LANREOTIDE ACETATE [Suspect]
     Active Substance: LANREOTIDE ACETATE
     Indication: Neuroendocrine tumour
     Dosage: THERAPY START DATE: 25-APR-2024
     Route: 058
  7. Sunitumib [Concomitant]
     Indication: Product used for unknown indication
     Dosage: 25 MG, QD  DAILY

REACTIONS (18)
  - Death [Fatal]
  - Nephrolithiasis [Unknown]
  - Blood calcium increased [Recovering/Resolving]
  - Cardiac disorder [Unknown]
  - Atelectasis [Unknown]
  - Platelet count decreased [Unknown]
  - Myocardial infarction [Unknown]
  - Abdominal pain [Recovering/Resolving]
  - Pancreatitis [Unknown]
  - Dyspnoea [Recovering/Resolving]
  - Malaise [Unknown]
  - Hypotension [Unknown]
  - Ocular hyperaemia [Recovering/Resolving]
  - Dizziness postural [Recovered/Resolved]
  - Hyperglycaemia [Unknown]
  - Lethargy [Unknown]
  - Vomiting [Unknown]
  - Fatigue [Not Recovered/Not Resolved]

NARRATIVE: CASE EVENT DATE: 20240101
